FAERS Safety Report 8257980-6 (Version None)
Quarter: 2012Q1

REPORT INFORMATION
  Report Type: 
  Country: None (occurrence: None)
  Receive Date: 20111211
  Receipt Date: 20110809
  Transmission Date: 20120608
  Serious: No
  Sender: FDA-Public Use
  Company Number: 201108028

PATIENT
  Sex: Male

DRUGS (1)
  1. XIAFLEX (CLOSTRIDIAL COLLAGENASE) [Suspect]
     Indication: DUPUYTREN'S CONTRACTURE

REACTIONS (1)
  - BLOOD BLISTER [None]
